FAERS Safety Report 4919541-3 (Version None)
Quarter: 2006Q1

REPORT INFORMATION
  Report Type: 
  Country: None (occurrence: None)
  Receive Date: 20060222
  Receipt Date: 20051017
  Transmission Date: 20060701
  Serious: Yes (Hospitalization, Disabling, Other)
  Sender: FDA-Public Use
  Company Number: US-MERCK-0510USA07696

PATIENT
  Age: 42 Year
  Sex: Male
  Weight: 182 kg

DRUGS (8)
  1. KLOR-CON [Concomitant]
     Indication: BLOOD POTASSIUM DECREASED
     Route: 065
  2. NEXIUM [Concomitant]
     Indication: GASTROOESOPHAGEAL REFLUX DISEASE
     Route: 065
  3. LANTUS [Concomitant]
     Indication: DIABETES MELLITUS
     Route: 065
  4. COUMADIN [Concomitant]
     Indication: THROMBOSIS
     Route: 065
     Dates: end: 20010101
  5. NAPROXEN [Concomitant]
     Indication: ARTHRITIS
     Route: 065
     Dates: start: 20000101, end: 20010101
  6. VIOXX [Suspect]
     Indication: ARTHRITIS
     Route: 048
     Dates: start: 20010101, end: 20030301
  7. INSULIN [Concomitant]
     Indication: DIABETES MELLITUS
     Route: 065
  8. LASIX [Concomitant]
     Indication: OEDEMA PERIPHERAL
     Route: 048
     Dates: start: 19900101, end: 20031019

REACTIONS (11)
  - BLOOD CHOLESTEROL INCREASED [None]
  - CARDIAC DISORDER [None]
  - CEREBROVASCULAR ACCIDENT [None]
  - CHEST PAIN [None]
  - DEEP VEIN THROMBOSIS [None]
  - DYSPNOEA [None]
  - HYPOAESTHESIA [None]
  - MYOCARDIAL INFARCTION [None]
  - OBESITY [None]
  - OSTEOARTHRITIS [None]
  - SLEEP APNOEA SYNDROME [None]
